FAERS Safety Report 9300542 (Version 1)
Quarter: 2013Q1

REPORT INFORMATION
  Report Type: Spontaneous
  Country: US (occurrence: None)
  Receive Date: 20130107
  Receipt Date: 20130107
  Transmission Date: 20140127
  Serious: Yes (Other)
  Sender: FDA-Public Use
  Company Number: PHEH2012US019908

PATIENT
  Age: 27 Year
  Sex: Female

DRUGS (1)
  1. GILENYA [Suspect]
     Indication: MULTIPLE SCLEROSIS
     Route: 048

REACTIONS (8)
  - Multiple sclerosis relapse [None]
  - Drug ineffective [None]
  - Central nervous system lesion [None]
  - Visual acuity reduced [None]
  - Urinary incontinence [None]
  - Gait disturbance [None]
  - Speech disorder [None]
  - Bladder disorder [None]
